FAERS Safety Report 9709760 (Version 1)
Quarter: 2013Q4

REPORT INFORMATION
  Report Type: Spontaneous
  Country: US (occurrence: US)
  Receive Date: 20131126
  Receipt Date: 20131126
  Transmission Date: 20140711
  Serious: Yes (Other)
  Sender: FDA-Public Use
  Company Number: US-ASTRAZENECA-2013SE84793

PATIENT
  Age: 77 Year
  Sex: Female

DRUGS (2)
  1. ARIMIDEX [Suspect]
     Indication: BREAST CANCER
     Route: 048
  2. FASLODEX [Suspect]
     Indication: BREAST CANCER
     Route: 048

REACTIONS (1)
  - Breast cancer recurrent [Unknown]
